FAERS Safety Report 6332193-3 (Version None)
Quarter: 2009Q3

REPORT INFORMATION
  Report Type: 
  Country: None (occurrence: None)
  Receive Date: 20090827
  Receipt Date: 20090827
  Transmission Date: 20100115
  Serious: Yes (Hospitalization)
  Sender: FDA-Public Use
  Company Number: None

PATIENT
  Sex: Female
  Weight: 93.8946 kg

DRUGS (3)
  1. TAXOL [Suspect]
     Indication: BREAST CANCER STAGE II
     Dates: start: 20090622
  2. CISPLATIN [Suspect]
     Dates: start: 20090622
  3. RAD001/PLACEBO [Concomitant]

REACTIONS (6)
  - BALANCE DISORDER [None]
  - FEELING DRUNK [None]
  - GAIT DISTURBANCE [None]
  - HAEMOGLOBIN DECREASED [None]
  - TINNITUS [None]
  - VERTIGO [None]
